FAERS Safety Report 13958163 (Version 1)
Quarter: 2017Q3

REPORT INFORMATION
  Report Type: Spontaneous
  Country: BR (occurrence: BR)
  Receive Date: 20170912
  Receipt Date: 20170912
  Transmission Date: 20171128
  Serious: Yes (Hospitalization, Other)
  Sender: FDA-Public Use
  Company Number: PHHY2017BR132713

PATIENT
  Sex: Female

DRUGS (1)
  1. AMOXICILLIN, CLAVULANATE [Suspect]
     Active Substance: AMOXICILLIN\CLAVULANATE POTASSIUM
     Indication: PHARYNGEAL OEDEMA
     Dosage: 10 ML, Q8H
     Route: 048
     Dates: start: 20170823

REACTIONS (6)
  - Sepsis [Unknown]
  - Burning sensation [Unknown]
  - Ear swelling [Unknown]
  - Ear discomfort [Unknown]
  - Swelling face [Unknown]
  - Erythema [Unknown]
